FAERS Safety Report 5384497-9 (Version None)
Quarter: 2007Q3

REPORT INFORMATION
  Report Type: 
  Country: None (occurrence: None)
  Receive Date: 20070711
  Receipt Date: 20070629
  Transmission Date: 20080115
  Serious: Yes (Other)
  Sender: FDA-Public Use
  Company Number: US-PFIZER INC-2004039546

PATIENT
  Sex: Male

DRUGS (1)
  1. VIAGRA [Suspect]
     Indication: ILL-DEFINED DISORDER

REACTIONS (8)
  - BLOOD PRESSURE ABNORMAL [None]
  - CATARACT [None]
  - CHOROIDAL INFARCTION [None]
  - CHOROIDAL NAEVUS [None]
  - OPTIC ISCHAEMIC NEUROPATHY [None]
  - OVERDOSE [None]
  - RETINAL DISORDER [None]
  - VITREOUS DETACHMENT [None]
